FAERS Safety Report 9633097 (Version 2)
Quarter: 2013Q4

REPORT INFORMATION
  Report Type: Report from Study
  Country: NL (occurrence: NL)
  Receive Date: 20131018
  Receipt Date: 20131018
  Transmission Date: 20140711
  Serious: Yes (Hospitalization, Other)
  Sender: FDA-Public Use
  Company Number: NL-ASTRAZENECA-2013SE07844

PATIENT
  Age: 27793 Day
  Sex: Male

DRUGS (9)
  1. AZD6140 [Suspect]
     Indication: CORONARY ARTERY DISEASE
     Route: 048
     Dates: start: 20110531, end: 20110927
  2. AZD6140 [Suspect]
     Indication: CORONARY ARTERY DISEASE
     Route: 048
     Dates: start: 20121121, end: 20130127
  3. ASA [Concomitant]
     Route: 048
  4. METROPOLOL [Concomitant]
     Indication: VASODILATATION
     Route: 048
  5. TRITACE [Concomitant]
     Indication: PROPHYLAXIS
     Route: 048
  6. TRITACE [Concomitant]
     Indication: ACUTE CORONARY SYNDROME
     Route: 048
  7. ISOSORBIDENITRATE [Concomitant]
     Indication: CHEST PAIN
     Dosage: AS REQUIRED
     Route: 048
  8. PLAVIX [Concomitant]
     Indication: STENT PLACEMENT
     Route: 048
     Dates: start: 20111009
  9. SIMVASTATINE [Concomitant]
     Indication: BLOOD CHOLESTEROL ABNORMAL
     Route: 048

REACTIONS (1)
  - Cystitis radiation [Recovered/Resolved]
